FAERS Safety Report 26199854 (Version 1)
Quarter: 2025Q4

REPORT INFORMATION
  Report Type: Spontaneous
  Country: GB (occurrence: GB)
  Receive Date: 20251225
  Receipt Date: 20251225
  Transmission Date: 20260118
  Serious: Yes (Other)
  Sender: TEVA
  Company Number: None

PATIENT
  Age: 72 Year
  Sex: Male

DRUGS (2)
  1. DOXAZOSIN [Suspect]
     Active Substance: DOXAZOSIN MESYLATE
     Indication: Blood pH
     Dates: start: 20251201
  2. INSULIN NOS [Concomitant]
     Active Substance: INSULIN NOS
     Indication: Adverse drug reaction

REACTIONS (8)
  - Myalgia [Recovering/Resolving]
  - Tinnitus [Recovering/Resolving]
  - Pruritus [Recovering/Resolving]
  - Back pain [Recovering/Resolving]
  - Anxiety [Recovering/Resolving]
  - Headache [Recovering/Resolving]
  - Arthralgia [Recovering/Resolving]
  - Balance disorder [Recovering/Resolving]

NARRATIVE: CASE EVENT DATE: 20251201
